FAERS Safety Report 7463458-X (Version None)
Quarter: 2011Q2

REPORT INFORMATION
  Report Type: 
  Country: None (occurrence: None)
  Receive Date: 20110506
  Receipt Date: 20110428
  Transmission Date: 20111010
  Serious: Yes (Hospitalization)
  Sender: FDA-Public Use
  Company Number: Z0009017A

PATIENT
  Sex: Male
  Weight: 60 kg

DRUGS (2)
  1. GSK1349572 [Suspect]
     Dates: start: 20110325
  2. ABACAVIR SULFATE/LAMIVUDINE [Suspect]
     Dosage: 1TAB PER DAY
     Route: 048

REACTIONS (1)
  - TOXOPLASMOSIS [None]
